FAERS Safety Report 6473997-6 (Version None)
Quarter: 2009Q4

REPORT INFORMATION
  Report Type: 
  Country: None (occurrence: None)
  Receive Date: 20091123
  Receipt Date: 20090921
  Transmission Date: 20100525
  Serious: No
  Sender: FDA-Public Use
  Company Number: 8035088

PATIENT
  Age: 31 Year
  Sex: Female
  Weight: 75.3 kg

DRUGS (5)
  1. CIMZIA [Suspect]
     Indication: CROHN'S DISEASE
     Dosage: 400 MG 1/2W SC
     Route: 058
     Dates: start: 20080703
  2. LUTERA-28 [Concomitant]
  3. ZYRTEC [Concomitant]
  4. ATIVAN [Concomitant]
  5. LOMOTIL [Concomitant]

REACTIONS (2)
  - AGITATION [None]
  - FATIGUE [None]
